FAERS Safety Report 4687792-1 (Version None)
Quarter: 2005Q2

REPORT INFORMATION
  Report Type: 
  Country: None (occurrence: None)
  Receive Date: 20050610
  Receipt Date: 20050607
  Transmission Date: 20051028
  Serious: Yes (Death)
  Sender: FDA-Public Use
  Company Number: CO-MERCK-0506COL00009

PATIENT
  Age: 79 Year
  Sex: Male
  Weight: 57 kg

DRUGS (1)
  1. HYZAAR [Suspect]
     Route: 048

REACTIONS (2)
  - ACUTE MYOCARDIAL INFARCTION [None]
  - HIP FRACTURE [None]
